FAERS Safety Report 6411100-9 (Version None)
Quarter: 2009Q4

REPORT INFORMATION
  Report Type: 
  Country: None (occurrence: None)
  Receive Date: 20091013
  Receipt Date: 20091008
  Transmission Date: 20100525
  Serious: Yes (Hospitalization)
  Sender: FDA-Public Use
  Company Number: WAES 0910USA00961

PATIENT
  Age: 56 Year
  Sex: Female

DRUGS (16)
  1. DECADRON TABLETS UNK [Suspect]
     Indication: MULTIPLE MYELOMA
     Dosage: 40 MG/WKY/PO
     Route: 048
     Dates: start: 20090723
  2. REVLIMID [Suspect]
     Indication: MULTIPLE MYELOMA
     Dosage: 25 MG/DAILY/PO
     Route: 048
     Dates: start: 20090723, end: 20090826
  3. THALIDOMIDE [Suspect]
     Indication: MULTIPLE MYELOMA
     Dosage: 100 MG/DAILY/PO
     Route: 048
     Dates: start: 20090723, end: 20090826
  4. BIAXIN [Suspect]
     Indication: MULTIPLE MYELOMA
     Dosage: 500 MG/DAILY/PO
     Route: 048
     Dates: start: 20090723, end: 20090826
  5. AVELOX [Concomitant]
  6. BACTRIM [Concomitant]
  7. ACETAMINOPHEN AND CODEINE PHOSPHATE [Concomitant]
  8. ALBUTEROL [Concomitant]
  9. ASPIRIN [Concomitant]
  10. HEPARIN [Concomitant]
  11. OLMESARTAN MEDOXOMIL [Concomitant]
  12. OMEPRAZOLE [Concomitant]
  13. PAROXETINE [Concomitant]
  14. PRAVASTATIN SODIUM [Concomitant]
  15. PREDNISONE [Concomitant]
  16. SUCRALFATE [Concomitant]

REACTIONS (13)
  - BRONCHITIS [None]
  - DEEP VEIN THROMBOSIS [None]
  - DEHYDRATION [None]
  - DEPRESSION [None]
  - GAIT DISTURBANCE [None]
  - HAEMATOCRIT DECREASED [None]
  - HAEMOGLOBIN DECREASED [None]
  - HYPOTENSION [None]
  - PNEUMONIA [None]
  - RENAL FAILURE [None]
  - SEPSIS [None]
  - SINUS TACHYCARDIA [None]
  - WHITE BLOOD CELL COUNT DECREASED [None]
